FAERS Safety Report 26055823 (Version 2)
Quarter: 2025Q4

REPORT INFORMATION
  Report Type: Report from Study
  Country: US (occurrence: US)
  Receive Date: 20251118
  Receipt Date: 20251226
  Transmission Date: 20260118
  Serious: Yes (Other)
  Sender: ABBVIE
  Company Number: US-ABBVIE-6548325

PATIENT
  Age: 31 Year
  Sex: Female

DRUGS (38)
  1. SKYRIZI [Suspect]
     Active Substance: RISANKIZUMAB-RZAA
     Indication: Crohn^s disease
     Route: 058
     Dates: start: 20230804
  2. MAALOX ANTACID [Concomitant]
     Active Substance: ALUMINUM HYDROXIDE\DIMETHICONE\MAGNESIUM HYDROXIDE
     Indication: Product used for unknown indication
     Dosage: PRN?STRENGTH: 40 MG/ML/40 MG/ML/4 MG/ML
     Route: 048
     Dates: start: 20251008
  3. MYLANTA ULTIMATE STRENGTH [Concomitant]
     Active Substance: CALCIUM CARBONATE\MAGNESIUM HYDROXIDE
     Indication: Dyspepsia
     Dosage: STRENGTH: 100 MG/ML, PRN
     Route: 061
     Dates: start: 20251008
  4. NORCO [Concomitant]
     Active Substance: ACETAMINOPHEN\HYDROCODONE BITARTRATE
     Indication: Product used for unknown indication
     Dosage: 325MG/5MG , PRN?ADMINISTRATION INSTRUCTIONS:?NORCO 5/325 TAB=HYDROCODONE/APAP 5MG/325MG?USE AS EQ...
     Route: 048
     Dates: start: 20251008
  5. NAPROXEN [Concomitant]
     Active Substance: NAPROXEN
     Indication: Product used for unknown indication
     Dosage: PRN,TAKE WITH FOOD; USE FOR NAPROSYN USE ANES PRN ORDERS FOR THE 1ST 24 HRS POSTPARTUM IF ORDERED
     Dates: start: 20251008
  6. EPHEDRINE SULFATE [Concomitant]
     Active Substance: EPHEDRINE SULFATE
     Indication: Product used for unknown indication
     Dosage: TIME INTERVAL: AS NECESSARY: 1 ML, 50MG/ML INJECTION ; 5 MG Q5M PRN?QUANTITY: 1?ADMINISTRATION IN...
  7. EPHEDRINE SULFATE [Concomitant]
     Active Substance: EPHEDRINE SULFATE
     Indication: Product used for unknown indication
     Dosage: TIME INTERVAL: AS NECESSARY: 1 ML, 50MG/ML INJECTION ; 5 MG Q5M PRN?QUANTITY: 1?ADMINISTRATION IN...
  8. SODIUM CHLORIDE [Concomitant]
     Active Substance: SODIUM CHLORIDE
     Indication: Product used for unknown indication
     Dosage: STRENGTH: 9 MG/ML?INSTRUCTIONS: NULECIT/FERRLECIT 250?MG IN NS TOTAL VOL = 270 INFUSE?OVER 2 HOURS
     Dates: start: 20250904, end: 20250904
  9. SODIUM CHLORIDE [Concomitant]
     Active Substance: SODIUM CHLORIDE
     Indication: Product used for unknown indication
     Dosage: STRENGTH: 9 MG/ML?INSTRUCTIONS: NULECIT/FERRLECIT 250?MG IN NS TOTAL VOL = 270 INFUSE?OVER 2 HOURS
     Dates: start: 20250911, end: 20250911
  10. SODIUM CHLORIDE [Concomitant]
     Active Substance: SODIUM CHLORIDE
     Indication: Product used for unknown indication
     Dosage: STRENGTH: 9 MG/ML?INSTRUCTIONS: NULECIT/FERRLECIT 250?MG IN NS TOTAL VOL = 270 INFUSE?OVER 2 HOURS
     Dates: start: 20250918, end: 20251101
  11. ONDANSETRON [Concomitant]
     Active Substance: ONDANSETRON
     Indication: Product used for unknown indication
     Dosage: STRENGTH: 2 MG/ML, PRN
     Dates: start: 20251007
  12. TERBUTALINE SULFATE [Concomitant]
     Active Substance: TERBUTALINE SULFATE
     Indication: Product used for unknown indication
     Dosage: TIME INTERVAL: AS NECESSARY: 1 MG/ML?INJECTION ; 0.25 MG LD Q20MIN?PRN?QUANTITY: 1
     Dates: start: 20251008
  13. TERBUTALINE SULFATE [Concomitant]
     Active Substance: TERBUTALINE SULFATE
     Indication: Product used for unknown indication
     Dosage: TIME INTERVAL: AS NECESSARY: 1 MG/ML?INJECTION ; 0.25 MG LD Q20MIN?PRN?QUANTITY: 1
     Dates: start: 20251007
  14. OXYTOCIN [Concomitant]
     Active Substance: OXYTOCIN
     Indication: Product used for unknown indication
     Dosage: 0.06 UNT/ML INJECTABLE?SOLUTION?ADMINISTRATION INSTRUCTIONS:?PITOCIN 30 UNITS IN 500 ML NS ?DISCA...
     Dates: start: 20251007, end: 20251008
  15. SERTRALINE [Concomitant]
     Active Substance: SERTRALINE HYDROCHLORIDE
     Indication: Product used for unknown indication
  16. METHYLERGONOVINE MALEATE [Concomitant]
     Active Substance: METHYLERGONOVINE MALEATE
     Indication: Product used for unknown indication
     Route: 048
     Dates: start: 20240803
  17. IBUPROFEN [Concomitant]
     Active Substance: IBUPROFEN
     Indication: Pain
     Dosage: PRN?AS NEEDED FOR PAIN SCALE 1-3
     Route: 048
     Dates: start: 20251010
  18. IBUPROFEN [Concomitant]
     Active Substance: IBUPROFEN
     Indication: Pain
     Dosage: PRN?AS NEEDED FOR PAIN SCALE 1-3
     Route: 048
     Dates: start: 20251008
  19. DOCUSATE SODIUM [Concomitant]
     Active Substance: DOCUSATE SODIUM
     Indication: Product used for unknown indication
     Route: 048
     Dates: start: 20251009
  20. MISOPROSTOL [Concomitant]
     Active Substance: MISOPROSTOL
     Indication: Product used for unknown indication
     Dosage: STRENGTH: 200 MCG, FREQ: ONCE, QUANTITY 2
     Dates: start: 20251008
  21. MISOPROSTOL [Concomitant]
     Active Substance: MISOPROSTOL
     Indication: Product used for unknown indication
     Dosage: 0.1 MG, PRN, QUANTITY 1
     Dates: start: 20251007
  22. MISOPROSTOL [Concomitant]
     Active Substance: MISOPROSTOL
     Indication: Product used for unknown indication
     Dosage: PRN, QUANTITY 1
     Dates: start: 20251007
  23. BENZOCAINE [Concomitant]
     Indication: Product used for unknown indication
     Dosage: STRENGTH: 20% 1 SPRAY  AER_AMERTSOE ; 1 SPRAY Q6H?PRN QUANTITY: 1
     Route: 061
     Dates: start: 20251008
  24. HYDROCORTISONE\PRAMOXINE [Concomitant]
     Active Substance: HYDROCORTISONE\PRAMOXINE
     Indication: Product used for unknown indication
     Dosage: TIME INTERVAL: AS NECESSARY: STRENGTH: 2.5%-1% ?QUANTITY: 1?KEEP AT BEDSIDE
     Dates: start: 20251008
  25. BISACODYL [Concomitant]
     Active Substance: BISACODYL
     Indication: Product used for unknown indication
     Dosage: PRN?QUANTITY: 1
     Dates: start: 20251008
  26. CALCIUM CHLORIDE [Concomitant]
     Active Substance: CALCIUM CHLORIDE
     Indication: Product used for unknown indication
     Dates: start: 20251008
  27. POTASSIUM CHLORIDE [Concomitant]
     Active Substance: POTASSIUM CHLORIDE
     Indication: Product used for unknown indication
     Dosage: 0.3 MG/ML
     Dates: start: 20251008
  28. GLYCERIN [Concomitant]
     Active Substance: GLYCERIN
     Indication: Product used for unknown indication
     Dosage: WITCH HAZEL LEAF ?ADMINISTRATION INSTRUCTIONS: APPLY TO HEMORROIDS?QUANTITY: 0
     Dates: start: 20251008
  29. LANOLIN [Concomitant]
     Active Substance: LANOLIN
     Indication: Product used for unknown indication
     Dosage: TIME INTERVAL: AS NECESSARY: ANHYD 1 APPLIC?TUBE_LANTOOE ; 1 APPLIC PRN?QUANTITY: 1?MAY KEEP AT B...
     Dates: start: 20251008
  30. PRECEDEX [Concomitant]
     Active Substance: DEXMEDETOMIDINE HYDROCHLORIDE
     Indication: Product used for unknown indication
     Dosage: 2 ML, 0.1 MG/ML?QUANTITY 1
     Dates: start: 20251008
  31. AMPICILLIN [Concomitant]
     Active Substance: AMPICILLIN
     Indication: Product used for unknown indication
     Dosage: STRENGTH: 250 MG/ML?QUANTITY: 1
     Dates: start: 20251008
  32. FLUTICASONE PROPIONATE\SALMETEROL XINAFOATE [Concomitant]
     Active Substance: FLUTICASONE PROPIONATE\SALMETEROL XINAFOATE
     Indication: Product used for unknown indication
     Dosage: INSTRUCTIONS: DC AFTER DELIVERY?NOTIFY RX WHEN TO DC
     Dates: start: 20251008, end: 20251010
  33. FLUTICASONE PROPIONATE\SALMETEROL XINAFOATE [Concomitant]
     Active Substance: FLUTICASONE PROPIONATE\SALMETEROL XINAFOATE
     Indication: Product used for unknown indication
     Dosage: ADMINISTRATION?INSTRUCTIONS: AMPICLLIN 2000 MG IN?100 ML NS
     Dates: start: 20251008, end: 20251008
  34. OXYTOCIN [Concomitant]
     Active Substance: OXYTOCIN
     Indication: Product used for unknown indication
     Dosage: 0.06 UNT/ML INJECTABLE?SOLUTION ; PROVIDER ADMINISTRATION?INSTRUCTIONS: PITOCIN 30 UNITS IN?500 ML
     Dates: start: 20251008, end: 20251009
  35. DIPHENHYDRAMINE HYDROCHLORIDE [Concomitant]
     Active Substance: DIPHENHYDRAMINE HYDROCHLORIDE
     Indication: Product used for unknown indication
     Dosage: 50 MG/ML  INJECTABLE SOLUTION?QUANTITY: 1?ONCE
     Dates: start: 20251008, end: 20251008
  36. BUPIVACAINE\FENTANYL [Concomitant]
     Active Substance: BUPIVACAINE\FENTANYL
     Indication: Product used for unknown indication
     Dosage: 0.1 %/2 MCG/ML INJECTABLE SOLUTION ;?PROVIDER ADMINISTRATION?INSTRUCTIONS:?FENTANYL/BUPIVACAINE?2...
     Dates: start: 20251008
  37. SODIUM CHLORIDE [Concomitant]
     Active Substance: SODIUM CHLORIDE
     Indication: Product used for unknown indication
     Dosage: 6 MG/ML
     Dates: start: 20251008
  38. SODIUM LACTATE [Concomitant]
     Active Substance: SODIUM LACTATE
     Indication: Product used for unknown indication
     Dosage: 3.1 MG/ML?DISCONTINUED
     Dates: start: 20251008

REACTIONS (2)
  - Abortion spontaneous [Unknown]
  - Maternal exposure during pregnancy [Unknown]
